FAERS Safety Report 8309002-6 (Version None)
Quarter: 2012Q2

REPORT INFORMATION
  Report Type: 
  Country: None (occurrence: None)
  Receive Date: 20120424
  Receipt Date: 20120421
  Transmission Date: 20120825
  Serious: Yes (Death)
  Sender: FDA-Public Use
  Company Number: BR-ABBOTT-12P-020-0898460-00

PATIENT
  Sex: Female
  Weight: 59 kg

DRUGS (2)
  1. HUMIRA [Suspect]
     Indication: RHEUMATOID ARTHRITIS
     Route: 058
     Dates: start: 20100101
  2. UNSPECIFIED MEDICINE [Concomitant]
     Indication: HYPERTENSION

REACTIONS (4)
  - BRAIN DEATH [None]
  - CONVULSION [None]
  - EMBOLISM [None]
  - DIABETES MELLITUS [None]
